FAERS Safety Report 8157214-7 (Version None)
Quarter: 2012Q1

REPORT INFORMATION
  Report Type: 
  Country: None (occurrence: None)
  Receive Date: 20120222
  Receipt Date: 20120222
  Transmission Date: 20120608
  Serious: Yes (Other)
  Sender: FDA-Public Use
  Company Number: None

PATIENT

DRUGS (1)
  1. HEPARIN SODIUM INJECTION [Suspect]
     Indication: INVESTIGATION
     Dosage: 7000-10000
     Route: 042
     Dates: start: 20120109, end: 20120109

REACTIONS (1)
  - COAGULATION TIME SHORTENED [None]
